FAERS Safety Report 13671424 (Version 1)
Quarter: 2017Q2

REPORT INFORMATION
  Report Type: Spontaneous
  Country: US (occurrence: US)
  Receive Date: 20170620
  Receipt Date: 20170620
  Transmission Date: 20170830
  Serious: No
  Sender: FDA-Public Use
  Company Number: US-ROCHE-1389288

PATIENT
  Sex: Female

DRUGS (1)
  1. XELODA [Suspect]
     Active Substance: CAPECITABINE
     Indication: PRODUCT USED FOR UNKNOWN INDICATION
     Route: 048
     Dates: start: 20140331

REACTIONS (8)
  - Back pain [Unknown]
  - Nausea [Unknown]
  - Gastric infection [Unknown]
  - Axillary pain [Unknown]
  - Abdominal pain [Unknown]
  - Sensory disturbance [Unknown]
  - Tongue ulceration [Unknown]
  - Pain in extremity [Unknown]
